FAERS Safety Report 10029857 (Version 2)
Quarter: 2014Q2

REPORT INFORMATION
  Report Type: Spontaneous
  Country: US (occurrence: None)
  Receive Date: 20140320
  Receipt Date: 20140407
  Transmission Date: 20141212
  Serious: Yes (Other)
  Sender: FDA-Public Use
  Company Number: 2014P1002183

PATIENT
  Age: 16 Year
  Sex: Male

DRUGS (1)
  1. MYORISAN 20 MG (NO PREF. NAME) [Suspect]
     Indication: ACNE
     Route: 048
     Dates: start: 20140120, end: 20140210

REACTIONS (1)
  - Mood altered [None]
